FAERS Safety Report 11872359 (Version 2)
Quarter: 2015Q4

REPORT INFORMATION
  Report Type: Spontaneous
  Country: IN (occurrence: IN)
  Receive Date: 20151228
  Receipt Date: 20151228
  Transmission Date: 20160305
  Serious: Yes (Other)
  Sender: FDA-Public Use
  Company Number: IN-BAYER-2015-490778

PATIENT
  Sex: Female
  Weight: 1.18 kg

DRUGS (11)
  1. ARTESUNATE [Concomitant]
     Active Substance: ARTESUNATE
     Route: 064
  2. AMIKACIN [Concomitant]
     Active Substance: AMIKACIN
     Route: 064
  3. CEFOTAXIME [Concomitant]
     Active Substance: CEFOTAXIME SODIUM
     Route: 064
  4. METRONIDAZOLE. [Concomitant]
     Active Substance: METRONIDAZOLE
     Route: 064
  5. OXYGEN. [Concomitant]
     Active Substance: OXYGEN
     Route: 064
  6. THIOPENTONE [Concomitant]
     Active Substance: THIOPENTAL SODIUM
     Route: 064
  7. NIFEDIPINE. [Suspect]
     Active Substance: NIFEDIPINE
     Route: 064
  8. BETAMETHASONE. [Concomitant]
     Active Substance: BETAMETHASONE
     Route: 064
  9. SALINE SOLUTIONS [Concomitant]
     Route: 064
  10. LEVOFLOXACIN. [Concomitant]
     Active Substance: LEVOFLOXACIN
     Route: 064
  11. SUCCINYLCHOLINE CHLORIDE. [Concomitant]
     Active Substance: SUCCINYLCHOLINE CHLORIDE
     Route: 064

REACTIONS (6)
  - Apgar score low [None]
  - Foetal exposure during pregnancy [None]
  - Premature baby [None]
  - Low birth weight baby [None]
  - Foetal heart rate decreased [None]
  - Meconium abnormal [None]
